FAERS Safety Report 5569532-7 (Version None)
Quarter: 2007Q4

REPORT INFORMATION
  Report Type: 
  Country: None (occurrence: None)
  Receive Date: 20071220
  Receipt Date: 20071218
  Transmission Date: 20080405
  Serious: Yes (Hospitalization)
  Sender: FDA-Public Use
  Company Number: ES-GILEAD-2007-0014702

PATIENT
  Age: 40 Year
  Sex: Male

DRUGS (6)
  1. VIREAD [Suspect]
     Indication: HIV INFECTION
     Route: 048
     Dates: start: 20030101, end: 20071111
  2. KALETRA [Suspect]
     Indication: HIV INFECTION
     Route: 048
     Dates: start: 20020101, end: 20071111
  3. EPIVIR [Suspect]
     Indication: HIV INFECTION
     Route: 048
     Dates: start: 20030101, end: 20071111
  4. ADOLONTA RETARD [Suspect]
     Indication: URETEROSCOPY
     Route: 048
     Dates: start: 20071010, end: 20071028
  5. AUGMENTIN '125' [Suspect]
     Indication: INFECTION PROPHYLAXIS
     Route: 048
     Dates: start: 20071010, end: 20071028
  6. TAVANIC [Suspect]
     Indication: INFECTION PROPHYLAXIS
     Route: 048
     Dates: start: 20071010, end: 20071028

REACTIONS (1)
  - HEPATITIS CHOLESTATIC [None]
